FAERS Safety Report 7965633-4 (Version None)
Quarter: 2011Q4

REPORT INFORMATION
  Report Type: 
  Country: None (occurrence: None)
  Receive Date: 20111208
  Receipt Date: 20111201
  Transmission Date: 20120403
  Serious: Yes (Other)
  Sender: FDA-Public Use
  Company Number: PHHY2011GB105142

PATIENT
  Age: 34 Year
  Sex: Female

DRUGS (4)
  1. RISPERIDONE [Suspect]
     Indication: PSYCHOTIC DISORDER
     Dosage: 1 MG, UNK
     Route: 048
     Dates: start: 20110822
  2. HYOSCINE HYDROBROMIDE [Concomitant]
  3. RISPERIDONE [Suspect]
     Dosage: 4 MG, QD
  4. ACETAMINOPHEN [Concomitant]

REACTIONS (2)
  - ARTHRALGIA [None]
  - MYALGIA [None]
